FAERS Safety Report 7630540-3 (Version None)
Quarter: 2011Q3

REPORT INFORMATION
  Report Type: 
  Country: None (occurrence: None)
  Receive Date: 20110722
  Receipt Date: 20110718
  Transmission Date: 20111222
  Serious: Yes (Life-Threatening, Hospitalization, Other)
  Sender: FDA-Public Use
  Company Number: PHHY2011US13506

PATIENT
  Sex: Female
  Weight: 67.26 kg

DRUGS (14)
  1. PROVIGIL [Concomitant]
     Indication: SLEEP DISORDER
     Dosage: 200 MG, QD, IN MORNING
     Route: 048
     Dates: start: 20110427
  2. DONEPEZIL HCL [Concomitant]
     Dosage: UNK
  3. LEXAPRO [Concomitant]
     Dosage: 30 MG, QD
     Dates: start: 20110323
  4. VITAMIN D [Concomitant]
     Dosage: 1000 U, QD
  5. LEXAPRO [Concomitant]
     Indication: MULTIPLE SCLEROSIS
     Dosage: 20 MG
     Route: 048
     Dates: start: 20110323
  6. FAMPRIDINE [Interacting]
     Indication: MULTIPLE SCLEROSIS
     Dosage: 10 MG, BID
     Route: 048
     Dates: start: 20100721, end: 20110503
  7. ARICEPT [Concomitant]
     Indication: MULTIPLE SCLEROSIS
     Dosage: 5 MG, DAILY
     Route: 048
     Dates: start: 20110413
  8. VESICARE [Concomitant]
     Indication: MULTIPLE SCLEROSIS
     Dosage: 10 MG,DAILY
     Dates: start: 20110208
  9. VITAMIN B-12 [Concomitant]
     Dosage: 400 MG, QD
  10. DETROL [Concomitant]
     Dosage: 4 MG, QD
  11. NAPROXEN (ALEVE) [Concomitant]
     Dosage: 220 MG, BID
  12. LUNESTA [Concomitant]
     Indication: SLEEP DISORDER
     Dosage: 3 MG, AT BEDTIME
     Route: 048
     Dates: start: 20110621
  13. CALCIUM W/VITAMIN D NOS [Concomitant]
     Dosage: 2 DF, QD
  14. GILENYA [Suspect]
     Indication: MULTIPLE SCLEROSIS
     Dosage: 0.5 MG, QD
     Route: 048
     Dates: start: 20110208, end: 20110708

REACTIONS (15)
  - MUSCULOSKELETAL STIFFNESS [None]
  - URINARY TRACT INFECTION [None]
  - LOSS OF CONSCIOUSNESS [None]
  - TONIC CLONIC MOVEMENTS [None]
  - CONVULSION [None]
  - MUSCLE SPASMS [None]
  - DEPRESSION [None]
  - SUICIDAL IDEATION [None]
  - DRUG INTERACTION [None]
  - UNRESPONSIVE TO STIMULI [None]
  - DYSKINESIA [None]
  - MUSCLE RIGIDITY [None]
  - NERVOUS SYSTEM DISORDER [None]
  - GRAND MAL CONVULSION [None]
  - GRIMACING [None]
